FAERS Safety Report 25951674 (Version 1)
Quarter: 2025Q4

REPORT INFORMATION
  Report Type: Spontaneous
  Country: KR (occurrence: KR)
  Receive Date: 20251023
  Receipt Date: 20251023
  Transmission Date: 20260118
  Serious: Yes (Other)
  Sender: Kenvue
  Company Number: KR-KENVUE-20251006315

PATIENT

DRUGS (1)
  1. TYLENOL 8HR [Suspect]
     Active Substance: ACETAMINOPHEN
     Indication: Evidence based treatment
     Dosage: 1 DOSAGE FORM, (1{DF} / 0.33DAY)
     Route: 065
     Dates: start: 20230613, end: 20230613

REACTIONS (2)
  - Depressed level of consciousness [Recovered/Resolved]
  - Dizziness [Recovered/Resolved]

NARRATIVE: CASE EVENT DATE: 20230613
